FAERS Safety Report 8620696 (Version 11)
Quarter: 2013Q2

REPORT INFORMATION
  Report Type: Spontaneous
  Country: US (occurrence: US)
  Receive Date: 20120618
  Receipt Date: 20130503
  Transmission Date: 20140414
  Serious: Yes (Death, Hospitalization, Other)
  Sender: FDA-Public Use
  Company Number: US-MSD-1203USA01478

PATIENT
  Sex: Female
  Weight: 48.35 kg

DRUGS (7)
  1. FOSAMAX [Suspect]
     Indication: OSTEOPOROSIS
     Dosage: 70 MG, QW
     Route: 048
     Dates: start: 200204, end: 201108
  2. ALENDRONATE SODIUM [Suspect]
     Dosage: 70 MG, UNK
     Route: 048
     Dates: start: 20090224
  3. CALCIUM (UNSPECIFIED) [Concomitant]
     Indication: OSTEOPOROSIS
     Dosage: 1200 MG, UNK
  4. IBUPROFEN [Concomitant]
     Indication: ARTHRALGIA
  5. VITAMIN D (UNSPECIFIED) [Concomitant]
     Indication: OSTEOPOROSIS
     Dosage: 1500 MG, UNK
  6. ACTONEL [Concomitant]
     Indication: OSTEOPOROSIS
     Dosage: 5 MG, QD
     Dates: start: 20011010
  7. ACTONEL [Concomitant]
     Dosage: 30 MG, UNK

REACTIONS (54)
  - Intraductal proliferative breast lesion [Unknown]
  - Oophorectomy [Unknown]
  - Renal failure acute [Not Recovered/Not Resolved]
  - Hysterectomy [Unknown]
  - Death [Fatal]
  - Rhabdomyolysis [Not Recovered/Not Resolved]
  - Failure to thrive [Not Recovered/Not Resolved]
  - Shock [Not Recovered/Not Resolved]
  - Hypernatraemia [Not Recovered/Not Resolved]
  - Mastectomy [Unknown]
  - Cachexia [Not Recovered/Not Resolved]
  - Electrocardiogram QT prolonged [Unknown]
  - Malnutrition [Not Recovered/Not Resolved]
  - Multi-vitamin deficiency [Not Recovered/Not Resolved]
  - Occult blood positive [Not Recovered/Not Resolved]
  - Encephalopathy [Not Recovered/Not Resolved]
  - Agitation [Unknown]
  - Excoriation [Not Recovered/Not Resolved]
  - Hypotension [Unknown]
  - Ileus [Unknown]
  - Hypoglycaemia [Unknown]
  - Abdominal pain [Unknown]
  - Osteonecrosis of jaw [Unknown]
  - Alanine aminotransferase increased [Unknown]
  - Hepatitis A [Unknown]
  - Sleep disorder [Unknown]
  - Iron deficiency anaemia [Unknown]
  - Anaemia vitamin B12 deficiency [Unknown]
  - Hypovitaminosis [Unknown]
  - Malabsorption [Unknown]
  - Chronic obstructive pulmonary disease [Unknown]
  - Monoclonal gammopathy [Unknown]
  - Renal impairment [Unknown]
  - Tooth fracture [Unknown]
  - Breast mass [Unknown]
  - Cardiac murmur [Unknown]
  - Hypertension [Unknown]
  - Fatigue [Unknown]
  - Raynaud^s phenomenon [Unknown]
  - Dental prosthesis placement [Unknown]
  - Bone loss [Unknown]
  - Bone deformity [Unknown]
  - Sinusitis [Unknown]
  - Dental caries [Unknown]
  - Tooth extraction [Unknown]
  - Oral infection [Unknown]
  - Fistula [Unknown]
  - Tooth disorder [Unknown]
  - Gingivectomy [Unknown]
  - Endodontic procedure [Unknown]
  - Hypocalcaemia [Unknown]
  - Diarrhoea [Unknown]
  - Dyspepsia [Unknown]
  - Gastrooesophageal reflux disease [Unknown]
